FAERS Safety Report 18893565 (Version 1)
Quarter: 2021Q1

REPORT INFORMATION
  Report Type: Spontaneous
  Country: CA (occurrence: CA)
  Receive Date: 20210215
  Receipt Date: 20210215
  Transmission Date: 20210420
  Serious: Yes (Other)
  Sender: FDA-Public Use
  Company Number: CA-PURDUE-USA-2020-0198758

PATIENT
  Sex: Female

DRUGS (3)
  1. MS CONTIN [Suspect]
     Active Substance: MORPHINE SULFATE
     Indication: PRODUCT USED FOR UNKNOWN INDICATION
     Dosage: UNK
     Route: 048
  2. OXYCONTIN [Suspect]
     Active Substance: OXYCODONE HYDROCHLORIDE
     Indication: PRODUCT USED FOR UNKNOWN INDICATION
     Dosage: UNK
     Route: 048
  3. OXYNEO [Suspect]
     Active Substance: OXYCODONE
     Indication: NEURALGIA
     Dosage: 180 MG, DAILY
     Route: 048
     Dates: start: 2007, end: 2019

REACTIONS (8)
  - Delirium [Not Recovered/Not Resolved]
  - Nausea [Unknown]
  - Drug dependence [Unknown]
  - Fatigue [Unknown]
  - Tooth disorder [Unknown]
  - Mobility decreased [Unknown]
  - Dyspepsia [Unknown]
  - Cognitive disorder [Not Recovered/Not Resolved]

NARRATIVE: CASE EVENT DATE: 2009
